FAERS Safety Report 7106366-6 (Version None)
Quarter: 2010Q4

REPORT INFORMATION
  Report Type: 
  Country: None (occurrence: None)
  Receive Date: 20101116
  Receipt Date: 20100618
  Transmission Date: 20110411
  Serious: No
  Sender: FDA-Public Use
  Company Number: US-PFIZER INC-2010077259

PATIENT
  Sex: Male

DRUGS (1)
  1. TOVIAZ [Suspect]
     Indication: MICTURITION DISORDER
     Dosage: 8 MG, DAILY
     Dates: start: 20100601, end: 20100617

REACTIONS (1)
  - DYSPEPSIA [None]
